FAERS Safety Report 5223394-6 (Version None)
Quarter: 2007Q1

REPORT INFORMATION
  Report Type: 
  Country: None (occurrence: None)
  Receive Date: 20070124
  Receipt Date: 20070112
  Transmission Date: 20070707
  Serious: Yes (Hospitalization)
  Sender: FDA-Public Use
  Company Number: 30769

PATIENT
  Age: 79 Year
  Sex: Male

DRUGS (4)
  1. FLECAINIDE ACETATE [Suspect]
     Indication: ATRIAL FIBRILLATION
     Dosage: 200 MG (100 MG, 2 IN 1 DAY (S)) ORAL
     Route: 048
     Dates: start: 20061117, end: 20061129
  2. ATENOLOL [Suspect]
     Indication: ATRIAL FIBRILLATION
     Dosage: (100 MG,) ORAL
     Route: 048
     Dates: start: 20061117, end: 20061129
  3. RAMIPRIL [Concomitant]
  4. WARFARIN SODIUM [Concomitant]

REACTIONS (2)
  - ACUTE PULMONARY OEDEMA [None]
  - CONDUCTION DISORDER [None]
